FAERS Safety Report 9037394 (Version 1)
Quarter: 2013Q1

REPORT INFORMATION
  Report Type: Spontaneous
  Country: US (occurrence: None)
  Receive Date: 20130115
  Receipt Date: 20130115
  Transmission Date: 20140127
  Serious: Yes (Other)
  Sender: FDA-Public Use
  Company Number: A1007771A

PATIENT
  Sex: Male

DRUGS (2)
  1. ALUMINIUM HYDROXIDE\MAGNESIUM CARBONATE [Suspect]
  2. BLOOD PRESSURE MEDICATION (FORMULATION UNKNOWN) (BLOOD PRESSURE MEDICATION) [Suspect]
     Indication: BLOOD PRESSURE ABNORMAL

REACTIONS (2)
  - Urinary tract infection [None]
  - Drug interaction [None]
